FAERS Safety Report 13045015 (Version 1)
Quarter: 2016Q4

REPORT INFORMATION
  Report Type: Spontaneous
  Country: US (occurrence: US)
  Receive Date: 20161220
  Receipt Date: 20161220
  Transmission Date: 20170207
  Serious: Yes (Other)
  Sender: FDA-Public Use
  Company Number: US-TESARO INC.-TS50-00171-2016USA

PATIENT
  Sex: Male
  Weight: 69.01 kg

DRUGS (2)
  1. VARUBI [Suspect]
     Active Substance: ROLAPITANT
     Indication: VOMITING
  2. VARUBI [Suspect]
     Active Substance: ROLAPITANT
     Indication: NAUSEA
     Dosage: TWO TABLETS
     Route: 048
     Dates: start: 20160309

REACTIONS (3)
  - Platelet count decreased [Unknown]
  - Joint injury [Recovering/Resolving]
  - Gastrointestinal obstruction [Recovering/Resolving]
